FAERS Safety Report 9073219 (Version 1)
Quarter: 2013Q1

REPORT INFORMATION
  Report Type: Report from Study
  Country: US (occurrence: US)
  Receive Date: 20130129
  Receipt Date: 20130129
  Transmission Date: 20140127
  Serious: No
  Sender: FDA-Public Use
  Company Number: US-ABBOTT-12P-163-0923638-00

PATIENT
  Sex: Female
  Weight: 77.18 kg

DRUGS (16)
  1. HUMIRA 40 MG/0.8 ML PEN [Suspect]
     Indication: CROHN^S DISEASE
     Dosage: LOADING DOSE
     Dates: start: 20120317, end: 20120317
  2. HUMIRA 40 MG/0.8 ML PEN [Suspect]
     Dates: start: 20120331, end: 20120331
  3. HUMIRA 40 MG/0.8 ML PEN [Suspect]
  4. PENTASA [Concomitant]
     Indication: CROHN^S DISEASE
  5. LIPITOR [Concomitant]
     Indication: BLOOD CHOLESTEROL
     Dosage: 10 MG DAILY
  6. TOPROL XL [Concomitant]
     Indication: BLOOD PRESSURE
     Dosage: 50 MG DAILY
  7. PLAVIX [Concomitant]
     Indication: CARDIAC DISORDER
     Dosage: 75 MG DAILY
  8. ALTACE [Concomitant]
     Indication: BLOOD PRESSURE
     Dosage: 20 MG DAILY
  9. PREDNISONE [Concomitant]
     Indication: SYSTEMIC LUPUS ERYTHEMATOSUS
     Dosage: 5 MG DAILY
  10. HYDROCHLOROTHIAZIDE [Concomitant]
     Indication: BLOOD PRESSURE
     Dosage: 25 MG DAILY
  11. LUNESTA [Concomitant]
     Indication: INSOMNIA
     Dosage: 3 MG AT BEDTIME
  12. ARICEPT [Concomitant]
     Indication: MEMORY IMPAIRMENT
     Dosage: 10 MG DAILY
  13. DEXILANT [Concomitant]
     Indication: PROPHYLAXIS AGAINST GASTROINTESTINAL ULCER
     Dosage: 60 MG DAILY
  14. NORVASC [Concomitant]
     Indication: BLOOD PRESSURE
     Dosage: 10 MG DAILY
  15. LYRICA [Concomitant]
     Indication: FIBROMYALGIA
     Dosage: 150 MG DAILY
  16. LOMOTIL [Concomitant]
     Indication: DIARRHOEA

REACTIONS (9)
  - Unevaluable event [Unknown]
  - Crohn^s disease [Not Recovered/Not Resolved]
  - Diarrhoea [Not Recovered/Not Resolved]
  - Abdominal pain upper [Not Recovered/Not Resolved]
  - Fatigue [Unknown]
  - Gastroenteritis viral [Unknown]
  - Abdominal pain upper [Unknown]
  - Vomiting [Unknown]
  - Pain in extremity [Unknown]
